FAERS Safety Report 14873880 (Version 4)
Quarter: 2018Q2

REPORT INFORMATION
  Report Type: Report from Study
  Country: IL (occurrence: IL)
  Receive Date: 20180510
  Receipt Date: 20180613
  Transmission Date: 20180711
  Serious: Yes (Hospitalization)
  Sender: FDA-Public Use
  Company Number: IL-ROCHE-2119849

PATIENT
  Age: 35 Year
  Sex: Male
  Weight: 52 kg

DRUGS (10)
  1. CARBOPLATIN. [Suspect]
     Active Substance: CARBOPLATIN
     Indication: NON-SMALL CELL LUNG CANCER STAGE IV
     Dosage: MOST RECENT DOSE (150 MG) PRIOR TO THE SAE ON 10/JUL/2016 ON 14:00?AREA UNDER THE CONCENTRATION CURV
     Route: 042
     Dates: start: 20160228
  2. CANNABIS [Concomitant]
     Active Substance: CANNABIS SATIVA SUBSP. INDICA TOP
     Indication: PAIN
     Route: 065
     Dates: start: 20160401
  3. NAB-PACLITAXEL [Suspect]
     Active Substance: PACLITAXEL
     Indication: NON-SMALL CELL LUNG CANCER STAGE IV
     Dosage: MOST RECENT DOSE (150 MG) PRIOR TO THE SAE ON 17/JUL/2016 ON 14:00?ON DAYS 1, 8, AND 15 OF EACH 21-D
     Route: 042
     Dates: start: 20160228
  4. FENTA [Concomitant]
     Indication: PAIN
     Route: 065
     Dates: start: 201310
  5. OXYCODONE [Concomitant]
     Active Substance: OXYCODONE
     Indication: PAIN
     Route: 065
     Dates: start: 201308
  6. ATEZOLIZUMAB. [Suspect]
     Active Substance: ATEZOLIZUMAB
     Indication: NON-SMALL CELL LUNG CANCER STAGE IV
     Dosage: MOST RECENT DOSE PRIOR TO THE SAE ON 09/APR/2018 ON 12:13?ON DAY 1 OF EACH 21-DAY CYCLE
     Route: 042
     Dates: start: 20160228
  7. TARGIN [Concomitant]
     Active Substance: NALOXONE HYDROCHLORIDE\OXYCODONE HYDROCHLORIDE
     Indication: PAIN
     Route: 065
     Dates: start: 201310
  8. ACAMOL [Concomitant]
     Active Substance: ACETAMINOPHEN
     Indication: INSOMNIA
     Route: 065
     Dates: start: 20170219
  9. ELTROXIN [Concomitant]
     Active Substance: LEVOTHYROXINE
     Indication: HYPOTHYROIDISM
     Route: 065
     Dates: start: 20171227
  10. FENTANIL [Concomitant]
     Active Substance: FENTANYL
     Indication: PAIN
     Route: 065
     Dates: start: 201310

REACTIONS (1)
  - General physical health deterioration [Not Recovered/Not Resolved]

NARRATIVE: CASE EVENT DATE: 20180502
